FAERS Safety Report 8521994-9 (Version None)
Quarter: 2012Q3

REPORT INFORMATION
  Report Type: 
  Country: None (occurrence: None)
  Receive Date: 20120719
  Receipt Date: 20120705
  Transmission Date: 20120928
  Serious: Yes (Other)
  Sender: FDA-Public Use
  Company Number: US-WATSON-2012-11782

PATIENT
  Sex: Female
  Weight: 51 kg

DRUGS (2)
  1. LEVONORGESTREL AND ETHINYL ESTRADIOL [Suspect]
     Indication: ORAL CONTRACEPTION
     Dosage: 1 QD
     Route: 048
     Dates: start: 20120301, end: 20120501
  2. LEVONORGESTREL AND ETHINYL ESTRADIOL [Suspect]
     Indication: DYSMENORRHOEA

REACTIONS (7)
  - MOOD SWINGS [None]
  - VIOLENCE-RELATED SYMPTOM [None]
  - ASTHENIA [None]
  - AGGRESSION [None]
  - DYSMENORRHOEA [None]
  - ANGER [None]
  - PREMENSTRUAL SYNDROME [None]
